FAERS Safety Report 17298236 (Version 1)
Quarter: 2020Q1

REPORT INFORMATION
  Report Type: Spontaneous
  Country: US (occurrence: US)
  Receive Date: 20200103
  Receipt Date: 20200103
  Transmission Date: 20200409
  Serious: No
  Sender: FDA-Public Use
  Company Number: None

PATIENT
  Age: 75 Year
  Sex: Male

DRUGS (1)
  1. IMATINIB. [Suspect]
     Active Substance: IMATINIB MESYLATE
     Route: 048
     Dates: start: 2010

REACTIONS (3)
  - Insurance issue [None]
  - Therapy cessation [None]
  - Product substitution issue [None]

NARRATIVE: CASE EVENT DATE: 20200103
